FAERS Safety Report 14172203 (Version 6)
Quarter: 2017Q4

REPORT INFORMATION
  Report Type: Report from Study
  Country: US (occurrence: US)
  Receive Date: 20171109
  Receipt Date: 20171212
  Transmission Date: 20180321
  Serious: Yes (Hospitalization, Other)
  Sender: FDA-Public Use
  Company Number: US-ACADIA PHARMACEUTICALS INC.-ACA-2017-006091

PATIENT

DRUGS (4)
  1. NUPLAZID [Suspect]
     Active Substance: PIMAVANSERIN TARTRATE
     Indication: DELUSION
  2. NUPLAZID [Suspect]
     Active Substance: PIMAVANSERIN TARTRATE
     Indication: HALLUCINATION
  3. NUPLAZID [Suspect]
     Active Substance: PIMAVANSERIN TARTRATE
     Indication: PARKINSON^S DISEASE PSYCHOSIS
     Dosage: 34 MG, QD
     Route: 048
     Dates: start: 20171023, end: 20171201
  4. ATORVASTATIN [Concomitant]
     Active Substance: ATORVASTATIN
     Indication: BLOOD CHOLESTEROL ABNORMAL
     Route: 065

REACTIONS (17)
  - Blood count abnormal [Unknown]
  - Aggression [Unknown]
  - Incoherent [Unknown]
  - Movement disorder [Unknown]
  - Thinking abnormal [Unknown]
  - Speech disorder [Unknown]
  - Haematochezia [Unknown]
  - Insomnia [Unknown]
  - Loss of personal independence in daily activities [Unknown]
  - Gastrointestinal ulcer [Unknown]
  - Paranoia [Not Recovered/Not Resolved]
  - Gait inability [Unknown]
  - Behaviour disorder due to a general medical condition [Unknown]
  - Ammonia increased [Unknown]
  - Hallucination [Not Recovered/Not Resolved]
  - Anger [Unknown]
  - Depression [Unknown]
